FAERS Safety Report 17105655 (Version 1)
Quarter: 2019Q4

REPORT INFORMATION
  Report Type: Spontaneous
  Country: CA (occurrence: CA)
  Receive Date: 20191203
  Receipt Date: 20191203
  Transmission Date: 20200122
  Serious: Yes (Other)
  Sender: FDA-Public Use
  Company Number: CA-PFIZER INC-2019471837

PATIENT
  Age: 55 Year
  Sex: Female

DRUGS (2)
  1. FRAGMIN [Suspect]
     Active Substance: DALTEPARIN SODIUM
     Dosage: 1200 IU, DAILY
     Route: 058
     Dates: start: 20190101
  2. FRAGMIN [Suspect]
     Active Substance: DALTEPARIN SODIUM
     Indication: THROMBOSIS
     Dosage: UNK
     Route: 058

REACTIONS (3)
  - Injury associated with device [Unknown]
  - Needle issue [Unknown]
  - Injection site pain [Unknown]
